FAERS Safety Report 17802052 (Version 2)
Quarter: 2021Q3

REPORT INFORMATION
  Report Type: Other
  Country: US (occurrence: US)
  Receive Date: 20200519
  Receipt Date: 20210720
  Transmission Date: 20211014
  Serious: Yes (Hospitalization, Other)
  Sender: FDA-Public Use
  Company Number: US-ROCHE-2599462

PATIENT
  Sex: Male

DRUGS (2)
  1. ESBRIET [Suspect]
     Active Substance: PIRFENIDONE
     Indication: IDIOPATHIC PULMONARY FIBROSIS
     Dosage: TAKE 2 TABLET(S) BY MOUTH 3 TIMES A DAY
     Route: 048
  2. ESBRIET [Suspect]
     Active Substance: PIRFENIDONE
     Route: 065
     Dates: start: 2015

REACTIONS (6)
  - Hypoacusis [Not Recovered/Not Resolved]
  - Dyspnoea [Unknown]
  - Hypoacusis [Unknown]
  - Pulmonary fibrosis [Not Recovered/Not Resolved]
  - Lung disorder [Not Recovered/Not Resolved]
  - Asthenia [Unknown]
